FAERS Safety Report 25759145 (Version 1)
Quarter: 2025Q3

REPORT INFORMATION
  Report Type: Spontaneous
  Country: US (occurrence: US)
  Receive Date: 20250904
  Receipt Date: 20250904
  Transmission Date: 20251021
  Serious: Yes (Other)
  Sender: GE HEALTHCARE
  Company Number: US-GE HEALTHCARE-2025CSU012094

PATIENT
  Age: 72 Year
  Sex: Female

DRUGS (1)
  1. VISIPAQUE [Suspect]
     Active Substance: IODIXANOL
     Indication: Computerised tomogram
     Route: 065

REACTIONS (1)
  - Anaphylactic reaction [Unknown]
